FAERS Safety Report 8594622-4 (Version None)
Quarter: 2012Q3

REPORT INFORMATION
  Report Type: 
  Country: None (occurrence: None)
  Receive Date: 20120815
  Receipt Date: 20120810
  Transmission Date: 20120928
  Serious: No
  Sender: FDA-Public Use
  Company Number: US-PFIZER INC-2012186136

PATIENT
  Sex: Female

DRUGS (2)
  1. PREMARIN [Suspect]
     Indication: VULVOVAGINAL DRYNESS
     Dosage: UNK, 1X/DAY
     Route: 067
     Dates: start: 20120101
  2. PREMARIN [Suspect]
     Indication: BLADDER DISORDER

REACTIONS (4)
  - PRURITUS [None]
  - SKIN LESION [None]
  - APPLICATION SITE HYPERSENSITIVITY [None]
  - DRUG INEFFECTIVE [None]
